FAERS Safety Report 6210304-8 (Version None)
Quarter: 2009Q2

REPORT INFORMATION
  Report Type: 
  Country: None (occurrence: None)
  Receive Date: 20090601
  Receipt Date: 20090521
  Transmission Date: 20091009
  Serious: Yes (Other)
  Sender: FDA-Public Use
  Company Number: GB-JNJFOC-20090505721

PATIENT
  Sex: Male
  Weight: 92 kg

DRUGS (5)
  1. REMICADE [Suspect]
     Indication: RHEUMATOID ARTHRITIS
     Dosage: DOSE: ^300^
     Route: 042
  2. MINOCYCLINE HCL [Concomitant]
  3. FOLIC ACID [Concomitant]
  4. LOSEC [Concomitant]
  5. SOLPADOL [Concomitant]

REACTIONS (1)
  - GASTROINTESTINAL NEOPLASM [None]
